FAERS Safety Report 14613515 (Version 1)
Quarter: 2018Q1

REPORT INFORMATION
  Report Type: Report from Study
  Country: DE (occurrence: DE)
  Receive Date: 20180308
  Receipt Date: 20180308
  Transmission Date: 20180509
  Serious: Yes (Other)
  Sender: FDA-Public Use
  Company Number: DE-PFIZER INC-2018092649

PATIENT
  Sex: Female
  Weight: 63 kg

DRUGS (15)
  1. AFINITOR [Suspect]
     Active Substance: EVEROLIMUS
     Dosage: 10 MG, QOD (EVERY 2 DAYS)
     Route: 048
     Dates: start: 20130411, end: 20130508
  2. L-THYROXIN [Concomitant]
     Active Substance: LEVOTHYROXINE SODIUM
     Dosage: 100 U, UNK
     Route: 065
     Dates: start: 20000101
  3. EXEMESTANE. [Suspect]
     Active Substance: EXEMESTANE
     Indication: BREAST CANCER
     Dosage: 25 MG, 1X/DAY
     Route: 048
     Dates: start: 20130108, end: 20130315
  4. DELIX /00885601/ [Concomitant]
     Active Substance: RAMIPRIL
     Dosage: 2.5 MG, UNK
     Route: 065
     Dates: start: 20120425
  5. PANTOZOL [Concomitant]
     Active Substance: PANTOPRAZOLE SODIUM
     Dosage: 40 MG, UNK
     Route: 065
     Dates: start: 20130809
  6. AFINITOR [Suspect]
     Active Substance: EVEROLIMUS
     Indication: BREAST CANCER METASTATIC
     Dosage: 10 MG, 1X/DAY
     Route: 048
     Dates: start: 20130108, end: 20130315
  7. AFINITOR [Suspect]
     Active Substance: EVEROLIMUS
     Dosage: 5 MG, 1X/DAY
     Route: 048
     Dates: start: 20130531, end: 20131105
  8. AFINITOR [Suspect]
     Active Substance: EVEROLIMUS
     Dosage: 5 MG, 1X/DAY
     Route: 048
     Dates: start: 20131125, end: 20150106
  9. AFINITOR [Suspect]
     Active Substance: EVEROLIMUS
     Dosage: 5 MG, 1X/DAY
     Route: 048
     Dates: start: 20150121, end: 20160313
  10. AFINITOR [Suspect]
     Active Substance: EVEROLIMUS
     Dosage: 5 MG, 1X/DAY
     Route: 048
     Dates: start: 20160331, end: 20160403
  11. XGEVA [Concomitant]
     Active Substance: DENOSUMAB
     Dosage: 120 MG, UNK
     Route: 042
     Dates: start: 20130101
  12. CALCIVIT D3 [Concomitant]
     Dosage: 600 MG/ 400 IU/ 1 DF
     Route: 065
     Dates: start: 20130102
  13. BISOPROLOL [Concomitant]
     Active Substance: BISOPROLOL
     Dosage: 5 MG, UNK
     Route: 065
     Dates: start: 20120425
  14. AFINITOR [Suspect]
     Active Substance: EVEROLIMUS
     Dosage: 10 MG, QOD (EVERY 2 DAYS)
     Route: 048
     Dates: start: 20150107, end: 20150120
  15. EXEMESTANE. [Suspect]
     Active Substance: EXEMESTANE
     Dosage: 25 MG, 1X/DAY
     Route: 048
     Dates: start: 20130328, end: 20160403

REACTIONS (13)
  - Eye swelling [Recovered/Resolved]
  - Stomatitis [Recovered/Resolved]
  - Stomatitis [Not Recovered/Not Resolved]
  - Ocular hyperaemia [Recovered/Resolved]
  - Diarrhoea [Recovered/Resolved]
  - Cystitis noninfective [Recovered/Resolved]
  - Dysuria [Recovered/Resolved]
  - Stomatitis [Recovered/Resolved]
  - Pollakiuria [Recovered/Resolved]
  - Infection reactivation [Not Recovered/Not Resolved]
  - Red blood cells urine [Unknown]
  - Stomatitis [Recovered/Resolved]
  - Herpes zoster [Not Recovered/Not Resolved]

NARRATIVE: CASE EVENT DATE: 20130112
